FAERS Safety Report 23055232 (Version 1)
Quarter: 2023Q4

REPORT INFORMATION
  Report Type: Spontaneous
  Country: US (occurrence: None)
  Receive Date: 20231011
  Receipt Date: 20231011
  Transmission Date: 20240110
  Serious: Yes (Hospitalization)
  Sender: FDA-Public Use
  Company Number: None

PATIENT
  Age: 77 Year
  Sex: Male

DRUGS (1)
  1. LENVIMA [Suspect]
     Active Substance: LENVATINIB
     Indication: Thymoma malignant
     Dosage: FREQUENCY : DAILY;?
     Route: 048
     Dates: start: 20230814, end: 20230904

REACTIONS (3)
  - Lung opacity [None]
  - Pneumonia [None]
  - Pulmonary toxicity [None]

NARRATIVE: CASE EVENT DATE: 20230904
